FAERS Safety Report 9166459 (Version 1)
Quarter: 2013Q1

REPORT INFORMATION
  Report Type: Spontaneous
  Country: US (occurrence: US)
  Receive Date: 20130315
  Receipt Date: 20130315
  Transmission Date: 20140127
  Serious: Yes (Hospitalization)
  Sender: FDA-Public Use
  Company Number: PHHY2013US023976

PATIENT
  Age: 78 Year
  Sex: Female

DRUGS (1)
  1. BUFFERIN [Suspect]
     Indication: THROMBOSIS
     Dosage: 1 DF, QD
     Route: 048
     Dates: start: 1965, end: 20120101

REACTIONS (4)
  - Thrombosis [Unknown]
  - Pain in extremity [Unknown]
  - Cardiac disorder [Unknown]
  - Incorrect drug administration duration [Unknown]
